FAERS Safety Report 26135797 (Version 1)
Quarter: 2025Q4

REPORT INFORMATION
  Report Type: Spontaneous
  Country: AU (occurrence: AU)
  Receive Date: 20251209
  Receipt Date: 20251209
  Transmission Date: 20260117
  Serious: Yes (Life-Threatening, Other)
  Sender: GILEAD
  Company Number: AU-GILEAD-2025-0739988

PATIENT
  Age: 69 Year
  Sex: Male

DRUGS (1)
  1. YESCARTA [Suspect]
     Active Substance: AXICABTAGENE CILOLEUCEL
     Indication: Diffuse large B-cell lymphoma refractory
     Dosage: UNK
     Route: 042
     Dates: start: 20251119

REACTIONS (9)
  - Immune effector cell-associated neurotoxicity syndrome [Recovering/Resolving]
  - Gastroenteritis norovirus [Unknown]
  - Cytokine release syndrome [Recovered/Resolved]
  - Delirium [Unknown]
  - Physical deconditioning [Unknown]
  - Affective disorder [Unknown]
  - Orthostatic hypotension [Unknown]
  - Diarrhoea [Unknown]
  - Malnutrition [Unknown]

NARRATIVE: CASE EVENT DATE: 20251121
